FAERS Safety Report 5518582-5 (Version None)
Quarter: 2007Q4

REPORT INFORMATION
  Report Type: 
  Country: None (occurrence: None)
  Receive Date: 20071115
  Receipt Date: 20071112
  Transmission Date: 20080405
  Serious: Yes (Other)
  Sender: FDA-Public Use
  Company Number: JP-PFIZER INC-2007095044

PATIENT
  Age: 60 Year
  Sex: Male

DRUGS (2)
  1. ZOLOFT [Suspect]
     Dosage: DAILY DOSE:25MG-TEXT:TDD:25 MG
     Route: 048
  2. ARICEPT [Concomitant]
     Route: 048

REACTIONS (1)
  - PARKINSONISM [None]
